FAERS Safety Report 4516233-X (Version None)
Quarter: 2004Q4

REPORT INFORMATION
  Report Type: 
  Country: None (occurrence: None)
  Receive Date: 20041129
  Receipt Date: 20041110
  Transmission Date: 20050328
  Serious: Yes (Death)
  Sender: FDA-Public Use
  Company Number: 04-284

PATIENT
  Age: 57 Year
  Weight: 56.6996 kg

DRUGS (5)
  1. DEXAMETHASONE TABLETS, 4MG, PAR PHARMACEUTICAL, INC. [Suspect]
     Indication: RADICULOPATHY
     Dosage: 1 TAPERED DOSE OF 32MGMS OVER 4 CONSECUTIVE DAYS; 16,8,4, AND 4
     Dates: start: 20030719, end: 20040722
  2. DEXAMETHASONE TABLETS, 4MG, PAR PHARMACEUTICAL, INC. [Suspect]
     Indication: SPINAL CORD INJURY SACRAL
     Dosage: 1 TAPERED DOSE OF 32MGMS OVER 4 CONSECUTIVE DAYS; 16,8,4, AND 4
     Dates: start: 20030719, end: 20040722
  3. LITHIUM [Concomitant]
  4. SONATA [Concomitant]
  5. AMBIEN [Concomitant]

REACTIONS (3)
  - COMPLETED SUICIDE [None]
  - DROWNING [None]
  - PSYCHOTIC DISORDER [None]
